FAERS Safety Report 4481103-2 (Version None)
Quarter: 2004Q4

REPORT INFORMATION
  Report Type: 
  Country: None (occurrence: None)
  Receive Date: 20040923
  Receipt Date: 20040527
  Transmission Date: 20050328
  Serious: No
  Sender: FDA-Public Use
  Company Number: USA040258564

PATIENT
  Age: 45 Year
  Sex: Female

DRUGS (2)
  1. FORTEO [Suspect]
     Indication: OSTEOPOROSIS
     Dates: start: 20040130
  2. CETIRIZINE HCL [Concomitant]

REACTIONS (3)
  - MUSCLE CRAMP [None]
  - NAUSEA [None]
  - ONYCHORRHEXIS [None]
